FAERS Safety Report 25521357 (Version 3)
Quarter: 2025Q4

REPORT INFORMATION
  Report Type: Report from Study
  Country: US (occurrence: US)
  Receive Date: 20250705
  Receipt Date: 20251031
  Transmission Date: 20260118
  Serious: Yes (Other)
  Sender: TRAVERE THERAPEUTICS
  Company Number: US-TRAVERE-2025TVT00918

PATIENT
  Age: 23 Year
  Sex: Male
  Weight: 82 kg

DRUGS (14)
  1. FILSPARI [Suspect]
     Active Substance: SPARSENTAN
     Indication: Nephritic syndrome
     Route: 048
     Dates: start: 20241201
  2. FILSPARI [Suspect]
     Active Substance: SPARSENTAN
     Indication: Focal segmental glomerulosclerosis
     Route: 048
     Dates: start: 20241214
  3. FARXIGA [Concomitant]
     Active Substance: DAPAGLIFLOZIN PROPANEDIOL
  4. MYCOPHENOLATE MOFETIL [Concomitant]
     Active Substance: MYCOPHENOLATE MOFETIL
  5. PROGRAF [Concomitant]
     Active Substance: TACROLIMUS
  6. MAGNESIUM [Concomitant]
     Active Substance: MAGNESIUM
  7. ATORVASTATIN [Concomitant]
     Active Substance: ATORVASTATIN
  8. COREG [Concomitant]
     Active Substance: CARVEDILOL
  9. Prednisone M-1728 [Concomitant]
  10. BUSPIRONE [Concomitant]
     Active Substance: BUSPIRONE HYDROCHLORIDE
  11. OBINUTUZUMAB [Concomitant]
     Active Substance: OBINUTUZUMAB
  12. DARATUMUMAB [Concomitant]
     Active Substance: DARATUMUMAB
  13. MYCOPHENOLIC ACID [Concomitant]
     Active Substance: MYCOPHENOLIC ACID
  14. DARATUMUMAB [Concomitant]
     Active Substance: DARATUMUMAB

REACTIONS (16)
  - Osteonecrosis [Unknown]
  - Weight increased [Unknown]
  - Blood pressure diastolic decreased [Unknown]
  - Dizziness postural [Unknown]
  - Increased appetite [Unknown]
  - Oedema peripheral [Unknown]
  - Limb injury [Unknown]
  - Oropharyngeal discomfort [Unknown]
  - Swelling [Unknown]
  - Urine analysis abnormal [Unknown]
  - Disease recurrence [Unknown]
  - Cough [Unknown]
  - Vitamin D deficiency [Unknown]
  - Tremor [Unknown]
  - Thrombocytopenia [Unknown]
  - Off label use [Unknown]

NARRATIVE: CASE EVENT DATE: 20250121
